FAERS Safety Report 6568429-3 (Version None)
Quarter: 2010Q1

REPORT INFORMATION
  Report Type: 
  Country: None (occurrence: None)
  Receive Date: 20100128
  Receipt Date: 20100113
  Transmission Date: 20100710
  Serious: Yes (Other)
  Sender: FDA-Public Use
  Company Number: 2010AC000066

PATIENT
  Age: 56 Year
  Sex: Female

DRUGS (7)
  1. DIGOXIN [Suspect]
     Dosage: PO
     Route: 048
     Dates: end: 20080523
  2. LISINOPRIL [Concomitant]
  3. METOPROLOL TARTRATE [Concomitant]
  4. FUROSEMIDE [Concomitant]
  5. K-DUR [Concomitant]
  6. AMOXICILLIN [Concomitant]
  7. DARVOCET [Concomitant]

REACTIONS (6)
  - ANXIETY [None]
  - CARDIOMYOPATHY [None]
  - DIZZINESS POSTURAL [None]
  - DYSPNOEA [None]
  - INJURY [None]
  - PAIN [None]
